FAERS Safety Report 15726801 (Version 4)
Quarter: 2018Q4

REPORT INFORMATION
  Report Type: Spontaneous
  Country: US (occurrence: US)
  Receive Date: 20181217
  Receipt Date: 20181227
  Transmission Date: 20190205
  Serious: Yes (Hospitalization, Other)
  Sender: FDA-Public Use
  Company Number: US-ACCORD-095988

PATIENT
  Age: 75 Year
  Sex: Female

DRUGS (15)
  1. METHOTREXATE. [Suspect]
     Active Substance: METHOTREXATE
     Indication: DIFFUSE LARGE B-CELL LYMPHOMA STAGE IV
  2. SALBUTAMOL [Concomitant]
     Active Substance: ALBUTEROL
  3. LEVOTHYROXINE. [Concomitant]
     Active Substance: LEVOTHYROXINE
  4. URSODEOXYCHOLIC ACID [Concomitant]
     Active Substance: URSODIOL
  5. NITROFURANTOIN/NITROFURANTOIN SODIUM [Interacting]
     Active Substance: NITROFURANTOIN
     Indication: URINARY TRACT INFECTION
     Dosage: 100 MG PO BID
  6. GABAPENTIN. [Concomitant]
     Active Substance: GABAPENTIN
  7. MACROGOL [Concomitant]
     Active Substance: POLYETHYLENE GLYCOLS
  8. DOCUSATE/DOCUSATE CALCIUM/DOCUSATE POTASSIUM/DOCUSATE SODIUM [Concomitant]
  9. ONDANSETRON [Concomitant]
     Active Substance: ONDANSETRON
  10. AMITRIPTYLINE [Concomitant]
     Active Substance: AMITRIPTYLINE
  11. HYDROCODONE BITARTRATE/PARACETAMOL [Concomitant]
  12. ACETAZOLAMIDE/ACETAZOLAMIDE SODIUM [Concomitant]
     Dosage: 500 MG
     Route: 048
  13. PROCHLORPERAZINE. [Concomitant]
     Active Substance: PROCHLORPERAZINE
  14. OMEGA-3 FATTY ACIDS [Concomitant]
     Active Substance: OMEGA-3 FATTY ACIDS
  15. FOLINIC ACID [Concomitant]
     Active Substance: LEUCOVORIN

REACTIONS (5)
  - Drug interaction [Unknown]
  - Drug clearance decreased [Recovered/Resolved]
  - Abdominal pain [Unknown]
  - Pleural effusion [Unknown]
  - Urinary hesitation [Unknown]
